FAERS Safety Report 9332667 (Version 1)
Quarter: 2013Q2

REPORT INFORMATION
  Report Type: Report from Study
  Country: US (occurrence: US)
  Receive Date: 20130606
  Receipt Date: 20130606
  Transmission Date: 20140414
  Serious: Yes (Hospitalization)
  Sender: FDA-Public Use
  Company Number: US-009507513-1305USA013999

PATIENT
  Age: 78 Year
  Sex: Female
  Weight: 70.3 kg

DRUGS (17)
  1. CORICIDIN HBP FLU [Suspect]
     Indication: UPPER RESPIRATORY TRACT INFECTION
     Dosage: 10 MG, TID
     Route: 048
     Dates: start: 20130228, end: 20130228
  2. HYDROCHLOROTHIAZIDE [Suspect]
     Indication: HYPERTENSION
     Dosage: UNK
     Dates: start: 1993
  3. NEXIUM [Concomitant]
     Indication: PROPHYLAXIS
     Dosage: UNK
  4. LEVOTHYROXINE SODIUM [Concomitant]
     Indication: HYPOTHYROIDISM
     Dosage: UNK
     Dates: start: 1952
  5. ASPIRIN [Concomitant]
     Indication: CARDIOVASCULAR EVENT PROPHYLAXIS
     Dosage: UNK
     Dates: start: 1993
  6. PLAVIX [Concomitant]
     Indication: PERIPHERAL ARTERIAL OCCLUSIVE DISEASE
     Dosage: UNK
     Dates: start: 1993
  7. SIMVASTATIN TABLETS, USP [Concomitant]
     Indication: HYPERLIPIDAEMIA
     Dosage: UNK
     Dates: start: 2010
  8. LOSARTAN POTASSIUM TABLETS [Concomitant]
     Indication: HYPERTENSION
     Dosage: UNK
     Dates: start: 1993
  9. ASCORBIC ACID [Concomitant]
     Indication: MEDICAL DIET
     Dosage: UNK
     Dates: start: 1993
  10. CALCIUM (UNSPECIFIED) [Concomitant]
     Indication: MEDICAL DIET
     Dosage: UNK
     Dates: start: 1993
  11. CYANOCOBALAMIN [Concomitant]
     Indication: MEDICAL DIET
     Dosage: UNK
     Dates: start: 1993
  12. CHOLINE [Concomitant]
     Indication: MEDICAL DIET
     Dosage: UNK
     Dates: start: 1993
  13. CHONDROITIN SULFATE SODIUM (+) GLUCOSAMINE SULFATE [Concomitant]
     Indication: OSTEOARTHRITIS
     Dosage: UNK
     Dates: start: 1993
  14. IBUPROFEN [Concomitant]
     Indication: OSTEOARTHRITIS
     Dosage: UNK
     Dates: start: 1993
  15. TYLENOL PM [Concomitant]
     Indication: OSTEOARTHRITIS
     Dosage: UNK
     Dates: start: 1993
  16. NITROGLYCERIN [Concomitant]
     Indication: ANGINA PECTORIS
     Dosage: UNK
     Dates: start: 1993
  17. OMEGA-3 MARINE TRIGLYCERIDES [Concomitant]
     Indication: MEDICAL DIET
     Dosage: UNK
     Dates: start: 1993

REACTIONS (2)
  - Syncope [Recovered/Resolved]
  - Hypokalaemia [Recovered/Resolved]
